FAERS Safety Report 4574252-1 (Version None)
Quarter: 2005Q1

REPORT INFORMATION
  Report Type: 
  Country: None (occurrence: None)
  Receive Date: 20050208
  Receipt Date: 20041116
  Transmission Date: 20050727
  Serious: No
  Sender: FDA-Public Use
  Company Number: US-GLAXOSMITHKLINE-A0534175A

PATIENT
  Age: 10 Year
  Sex: Male

DRUGS (1)
  1. PAXIL [Suspect]
     Indication: OBSESSIVE-COMPULSIVE DISORDER
     Dosage: 10MG UNKNOWN
     Route: 048

REACTIONS (1)
  - DRUG WITHDRAWAL SYNDROME [None]
